FAERS Safety Report 6025208-3 (Version None)
Quarter: 2008Q4

REPORT INFORMATION
  Report Type: 
  Country: None (occurrence: None)
  Receive Date: 20081229
  Receipt Date: 20081229
  Transmission Date: 20090506
  Serious: Yes (Hospitalization)
  Sender: FDA-Public Use
  Company Number: None

PATIENT
  Age: 70 Year
  Sex: Female
  Weight: 109.7705 kg

DRUGS (1)
  1. AYR SALINE NASAL GEL SPRAY B.F.ASCHER + CO INC. [Suspect]
     Indication: SINUSITIS
     Dosage: ONE SPRAY INTO EACH NOSTRIL ONCE NASAL
     Route: 045
     Dates: start: 20081222, end: 20081222

REACTIONS (3)
  - OROPHARYNGEAL PAIN [None]
  - THROAT IRRITATION [None]
  - THROAT TIGHTNESS [None]
